FAERS Safety Report 5235255-7 (Version None)
Quarter: 2007Q1

REPORT INFORMATION
  Report Type: 
  Country: None (occurrence: None)
  Receive Date: 20070212
  Receipt Date: 20070207
  Transmission Date: 20070707
  Serious: Yes (Hospitalization)
  Sender: FDA-Public Use
  Company Number: US-ELI_LILLY_AND_COMPANY-US200702001406

PATIENT
  Age: 42 Year
  Sex: Male

DRUGS (10)
  1. ZYPREXA ZYDIS [Suspect]
     Indication: BIPOLAR DISORDER
     Dosage: 10 MG, 3/D
  2. LISINOPRIL [Concomitant]
  3. LITHIUM CARBONATE [Concomitant]
  4. METHADONE HYDROCHLORIDE [Concomitant]
  5. OXYCODONE HCL [Concomitant]
  6. PRIMIDONE [Concomitant]
  7. SYNTHROID [Concomitant]
  8. ZETIA [Concomitant]
  9. ISOSORBIDE [Concomitant]
  10. ZYRTEC [Concomitant]

REACTIONS (2)
  - PRESCRIBED OVERDOSE [None]
  - PSYCHOTIC DISORDER [None]
